FAERS Safety Report 5952923-X (Version None)
Quarter: 2008Q4

REPORT INFORMATION
  Report Type: 
  Country: None (occurrence: None)
  Receive Date: 20081114
  Receipt Date: 20081110
  Transmission Date: 20090506
  Serious: Yes (Other)
  Sender: FDA-Public Use
  Company Number: GB-TEVA-180314ISR

PATIENT
  Age: 9 Year

DRUGS (6)
  1. METHOTREXATE [Suspect]
     Indication: STEM CELL TRANSPLANT
  2. ALEMTUZUMAB [Suspect]
     Indication: STEM CELL TRANSPLANT
  3. CYCLOSPORINE [Suspect]
     Indication: STEM CELL TRANSPLANT
  4. CYCLOPHOSPHAMIDE [Suspect]
     Indication: STEM CELL TRANSPLANT
     Route: 042
  5. TREOSULFAN [Suspect]
     Indication: STEM CELL TRANSPLANT
     Route: 042
  6. ALEMTUZUMAB [Suspect]

REACTIONS (4)
  - BONE MARROW FAILURE [None]
  - EPSTEIN-BARR VIRUS ASSOCIATED LYMPHOPROLIFERATIVE DISORDER [None]
  - EPSTEIN-BARR VIRUS INFECTION [None]
  - STEM CELL TRANSPLANT [None]
